FAERS Safety Report 11256223 (Version 2)
Quarter: 2025Q3

REPORT INFORMATION
  Report Type: Spontaneous
  Country: KR (occurrence: KR)
  Receive Date: 20150709
  Receipt Date: 20250818
  Transmission Date: 20251021
  Serious: Yes (Death)
  Sender: MERCK SHARP & DOHME LLC
  Company Number: KR-MERCK-1506KOR015440

PATIENT
  Age: 49 Year
  Sex: Male

DRUGS (13)
  1. CASPOFUNGIN ACETATE [Suspect]
     Active Substance: CASPOFUNGIN ACETATE
     Indication: Antifungal prophylaxis
     Dates: start: 20110614, end: 20110614
  2. CASPOFUNGIN ACETATE [Suspect]
     Active Substance: CASPOFUNGIN ACETATE
     Indication: Antifungal prophylaxis
     Dosage: DOSE DESCRIPTION : 50 MG, QD?DAILY DOSE : 50 MILLIGRAM?REGIMEN DOSE : 400  MILLIGRAM
     Dates: start: 20110615, end: 20110622
  3. IMIPENEM AND CILASTATIN [Suspect]
     Active Substance: CILASTATIN SODIUM\IMIPENEM
     Indication: Febrile neutropenia
     Dates: start: 20110607
  4. HYDROXYUREA [Concomitant]
     Active Substance: HYDROXYUREA
     Indication: Polycythaemia vera
     Dates: start: 2003
  5. DANAZOL [Concomitant]
     Active Substance: DANAZOL
     Indication: Myelofibrosis
     Dates: start: 2010
  6. THALIDOMIDE [Concomitant]
     Active Substance: THALIDOMIDE
     Indication: Myelofibrosis
     Dates: start: 2010
  7. PREDNISONE [Concomitant]
     Active Substance: PREDNISONE
     Indication: Myelofibrosis
     Dosage: DOSE DESCRIPTION : 10 MG, QD?DAILY DOSE : 10 MILLIGRAM?REGIMEN DOSE :   MILLIGRAM
     Route: 048
     Dates: start: 2010
  8. BUSULFAN [Concomitant]
     Active Substance: BUSULFAN
     Indication: Bone marrow conditioning regimen
  9. FLUDARABINE PHOSPHATE [Concomitant]
     Active Substance: FLUDARABINE PHOSPHATE
     Indication: Bone marrow conditioning regimen
  10. CYCLOSPORINE [Concomitant]
     Active Substance: CYCLOSPORINE
     Indication: Prophylaxis against graft versus host disease
     Dates: start: 20110601
  11. FLUCONAZOLE [Concomitant]
     Active Substance: FLUCONAZOLE
     Indication: Antifungal prophylaxis
     Dosage: DOSE DESCRIPTION : 100 MG, QD?DAILY DOSE : 100 MILLIGRAM?REGIMEN DOSE : 1300  MILLIGRAM
     Dates: start: 20110602, end: 20110614
  12. CEFEPIME [Concomitant]
     Active Substance: CEFEPIME HYDROCHLORIDE
     Indication: Febrile neutropenia
     Dates: start: 20110604, end: 20110607
  13. VANCOMYCIN [Concomitant]
     Active Substance: VANCOMYCIN
     Indication: Febrile neutropenia
     Dates: start: 20110610, end: 20110624

REACTIONS (2)
  - Death [Fatal]
  - Drug ineffective [Not Recovered/Not Resolved]

NARRATIVE: CASE EVENT DATE: 20110622
